FAERS Safety Report 9331415 (Version 1)
Quarter: 2013Q2

REPORT INFORMATION
  Report Type: Spontaneous
  Country: HK (occurrence: HK)
  Receive Date: 20130605
  Receipt Date: 20130605
  Transmission Date: 20140414
  Serious: Yes (Disabling, Other)
  Sender: FDA-Public Use
  Company Number: HK-ASTRAZENECA-2013SE38447

PATIENT
  Sex: Male

DRUGS (2)
  1. OMEPRAZOLE [Suspect]
     Indication: CHEST PAIN
     Route: 048
  2. TRIMETAZIDINE [Suspect]
     Indication: CHEST PAIN

REACTIONS (3)
  - Retinopathy [Unknown]
  - Constipation [Unknown]
  - Off label use [Unknown]
